FAERS Safety Report 23654389 (Version 1)
Quarter: 2024Q1

REPORT INFORMATION
  Report Type: Spontaneous
  Country: IT (occurrence: IT)
  Receive Date: 20240320
  Receipt Date: 20240320
  Transmission Date: 20240410
  Serious: Yes (Hospitalization)
  Sender: FDA-Public Use
  Company Number: IT-STRIDES ARCOLAB LIMITED-2024SP003202

PATIENT
  Age: 46 Year
  Sex: Male

DRUGS (23)
  1. MYCOPHENOLATE MOFETIL [Interacting]
     Active Substance: MYCOPHENOLATE MOFETIL
     Indication: Immunosuppressant drug therapy
     Dosage: UNK (500 MG+1000 MG/DAY)
     Route: 065
  2. MYCOPHENOLATE MOFETIL [Interacting]
     Active Substance: MYCOPHENOLATE MOFETIL
     Indication: Lung transplant
  3. MEROPENEM [Interacting]
     Active Substance: MEROPENEM
     Indication: Respiratory tract infection
     Dosage: 2 GRAM, TID
     Route: 042
  4. MEROPENEM [Interacting]
     Active Substance: MEROPENEM
     Indication: Pseudomonas infection
  5. LEVOFLOXACIN [Interacting]
     Active Substance: LEVOFLOXACIN
     Indication: Evidence based treatment
     Dosage: 500 MILLIGRAM PER DAY
     Route: 065
  6. COTRIMOXAZOLE [Interacting]
     Active Substance: SULFAMETHOXAZOLE\TRIMETHOPRIM
     Indication: Respiratory tract infection
     Dosage: UNK, BID
     Route: 065
  7. COTRIMOXAZOLE [Interacting]
     Active Substance: SULFAMETHOXAZOLE\TRIMETHOPRIM
     Indication: Pseudomonas infection
  8. CEPHALEXIN [Interacting]
     Active Substance: CEPHALEXIN
     Indication: Respiratory tract infection
     Dosage: 2 GRAM, TID
     Route: 065
  9. CEPHALEXIN [Interacting]
     Active Substance: CEPHALEXIN
     Indication: Pseudomonas infection
     Dosage: 2 GRAM, TID
     Route: 065
  10. FOSFOMYCIN [Interacting]
     Active Substance: FOSFOMYCIN
     Indication: Respiratory tract infection
     Dosage: 16 GRAM PER DAY
     Route: 065
  11. FOSFOMYCIN [Interacting]
     Active Substance: FOSFOMYCIN
     Indication: Pseudomonas infection
  12. PIPERACILLIN SODIUM\TAZOBACTAM SODIUM [Interacting]
     Active Substance: PIPERACILLIN SODIUM\TAZOBACTAM SODIUM
     Indication: Respiratory tract infection
     Dosage: 16 GRAM PER DAY
     Route: 065
  13. PIPERACILLIN SODIUM\TAZOBACTAM SODIUM [Interacting]
     Active Substance: PIPERACILLIN SODIUM\TAZOBACTAM SODIUM
     Indication: Pseudomonas infection
  14. AMIKACIN [Interacting]
     Active Substance: AMIKACIN
     Indication: Respiratory tract infection
     Dosage: 1 GRAM PER DAY
     Route: 042
  15. AMIKACIN [Interacting]
     Active Substance: AMIKACIN
     Indication: Pseudomonas infection
  16. AZITHROMYCIN [Interacting]
     Active Substance: AZITHROMYCIN
     Indication: Respiratory tract infection
     Dosage: 500 MILLIGRAM PER DAY
     Route: 048
  17. AZITHROMYCIN [Interacting]
     Active Substance: AZITHROMYCIN
     Indication: Pseudomonas infection
  18. EVEROLIMUS [Concomitant]
     Active Substance: EVEROLIMUS
     Indication: Immunosuppressant drug therapy
     Dosage: 1.5 MILLIGRAM, BID
     Route: 065
  19. EVEROLIMUS [Concomitant]
     Active Substance: EVEROLIMUS
     Indication: Lung transplant
  20. INSULIN GLARGINE [Concomitant]
     Active Substance: INSULIN GLARGINE
     Indication: Type 1 diabetes mellitus
     Dosage: UNK
     Route: 065
  21. INSULIN LISPRO [Concomitant]
     Active Substance: INSULIN LISPRO
     Indication: Type 1 diabetes mellitus
     Dosage: UNK
     Route: 065
  22. CALCIUM CARBONATE [Concomitant]
     Active Substance: CALCIUM CARBONATE
     Indication: Osteoporosis
     Dosage: UNK
     Route: 065
  23. CHOLECALCIFEROL [Concomitant]
     Active Substance: CHOLECALCIFEROL
     Indication: Osteoporosis
     Dosage: UNK
     Route: 065

REACTIONS (9)
  - Drug interaction [Unknown]
  - Immunosuppressant drug level decreased [Recovered/Resolved]
  - Respiratory tract infection [Recovered/Resolved]
  - Pseudomonas infection [Recovered/Resolved]
  - H1N1 influenza [Unknown]
  - Abdominal pain upper [Unknown]
  - Vomiting [Unknown]
  - Diarrhoea [Unknown]
  - Off label use [Unknown]
